FAERS Safety Report 10211055 (Version 1)
Quarter: 2014Q2

REPORT INFORMATION
  Report Type: Spontaneous
  Country: US (occurrence: None)
  Receive Date: 20140530
  Receipt Date: 20140530
  Transmission Date: 20141212
  Serious: No
  Sender: FDA-Public Use
  Company Number: None

PATIENT
  Age: 86 Year
  Sex: Female

DRUGS (3)
  1. IMBRUVICA [Suspect]
     Indication: CHRONIC LYMPHOCYTIC LEUKAEMIA
     Route: 048
     Dates: start: 20140410
  2. LISINOPRIL [Concomitant]
  3. IMODIUM [Concomitant]

REACTIONS (7)
  - Oedema [None]
  - Oedema peripheral [None]
  - Diarrhoea [None]
  - Chest pain [None]
  - Dyspnoea [None]
  - Asthenia [None]
  - Gait disturbance [None]
